FAERS Safety Report 15143830 (Version 1)
Quarter: 2018Q3

REPORT INFORMATION
  Report Type: Spontaneous
  Country: US (occurrence: US)
  Receive Date: 20180713
  Receipt Date: 20180713
  Transmission Date: 20181010
  Serious: No
  Sender: FDA-Public Use
  Company Number: US-AMGEN-USASP2011009516

PATIENT
  Age: 64 Year
  Sex: Male

DRUGS (3)
  1. PROCRIT [Suspect]
     Active Substance: ERYTHROPOIETIN
     Dosage: 10000 IU, QMO
     Route: 058
     Dates: start: 20110215
  2. PROCRIT [Suspect]
     Active Substance: ERYTHROPOIETIN
     Indication: ANAEMIA
     Dosage: 10000 IU, Q2WK
     Route: 058
     Dates: start: 201012, end: 201101
  3. PROCRIT [Suspect]
     Active Substance: ERYTHROPOIETIN
     Dosage: 10000 IU, QWK
     Dates: start: 201005, end: 201012

REACTIONS (2)
  - Drug administration error [Recovered/Resolved]
  - Drug prescribing error [Recovered/Resolved]

NARRATIVE: CASE EVENT DATE: 201012
